FAERS Safety Report 24071489 (Version 1)
Quarter: 2024Q3

REPORT INFORMATION
  Report Type: Report from Study
  Country: DE (occurrence: DE)
  Receive Date: 20240710
  Receipt Date: 20240710
  Transmission Date: 20241017
  Serious: No
  Sender: ROCHE
  Company Number: DE-ROCHE-3272247

PATIENT
  Age: 9 Year
  Sex: Male
  Weight: 28.8 kg

DRUGS (3)
  1. EVRYSDI [Suspect]
     Active Substance: RISDIPLAM
     Indication: Spinal muscular atrophy
     Dosage: LAST DOSE ON 01/SEP/2022
     Route: 048
     Dates: start: 20211129
  2. EVRYSDI [Suspect]
     Active Substance: RISDIPLAM
     Dosage: LAST DOSE ON 10/APR/2024
     Route: 048
     Dates: start: 20211206
  3. CHOLECALCIFEROL [Concomitant]
     Active Substance: CHOLECALCIFEROL
     Indication: Product used for unknown indication
     Dates: start: 202111

REACTIONS (2)
  - Aphthous ulcer [Recovered/Resolved]
  - Respiratory tract infection [Recovered/Resolved]

NARRATIVE: CASE EVENT DATE: 20211201
